FAERS Safety Report 13362460 (Version 1)
Quarter: 2017Q1

REPORT INFORMATION
  Report Type: Other
  Country: IN (occurrence: IN)
  Receive Date: 20170323
  Receipt Date: 20170323
  Transmission Date: 20170429
  Serious: Yes (Congenital Anomaly)
  Sender: FDA-Public Use
  Company Number: IN-DEXPHARM-20170359

PATIENT
  Sex: Female

DRUGS (2)
  1. LEVETIRACETAM. [Suspect]
     Active Substance: LEVETIRACETAM
     Indication: MATERNAL EXPOSURE DURING PREGNANCY
     Dosage: 1000MG/DAY
  2. LEVETIRACETAM. [Suspect]
     Active Substance: LEVETIRACETAM
     Indication: MATERNAL EXPOSURE DURING PREGNANCY
     Dosage: 1250MG/DAY

REACTIONS (4)
  - Cleft lip [Not Recovered/Not Resolved]
  - Preauricular cyst [Not Recovered/Not Resolved]
  - Selective eating disorder [Unknown]
  - Spine malformation [Not Recovered/Not Resolved]
